FAERS Safety Report 9838559 (Version 1)
Quarter: 2014Q1

REPORT INFORMATION
  Report Type: Spontaneous
  Country: AT (occurrence: AT)
  Receive Date: 20140123
  Receipt Date: 20140123
  Transmission Date: 20141002
  Serious: Yes (Hospitalization)
  Sender: FDA-Public Use
  Company Number: AT-PFIZER INC-2014015114

PATIENT
  Age: 70 Year
  Sex: Female

DRUGS (1)
  1. XALKORI [Suspect]
     Dosage: UNK
     Dates: start: 201311, end: 201401

REACTIONS (4)
  - Pleural effusion [Recovered/Resolved]
  - Pneumothorax [Recovered/Resolved]
  - Fatigue [Recovered/Resolved]
  - Decreased appetite [Recovered/Resolved]
